FAERS Safety Report 7465655-6 (Version None)
Quarter: 2011Q2

REPORT INFORMATION
  Report Type: 
  Country: None (occurrence: None)
  Receive Date: 20110509
  Receipt Date: 20110322
  Transmission Date: 20111010
  Serious: Yes (Other)
  Sender: FDA-Public Use
  Company Number: A0919527A

PATIENT
  Age: 69 Year
  Sex: Male

DRUGS (6)
  1. TASMAR [Concomitant]
     Dosage: 100MG THREE TIMES PER DAY
     Route: 065
  2. AMANTADINE HCL [Concomitant]
     Dosage: 100MG THREE TIMES PER DAY
     Route: 065
  3. PROLOPA [Concomitant]
     Route: 065
  4. REQUIP XL [Concomitant]
     Indication: PARKINSON'S DISEASE
     Route: 065
  5. REQUIP [Suspect]
     Indication: PARKINSON'S DISEASE
     Route: 048
  6. SINEMET [Concomitant]
     Route: 065

REACTIONS (5)
  - ADVERSE DRUG REACTION [None]
  - NECK PAIN [None]
  - DYSKINESIA [None]
  - MUSCLE TWITCHING [None]
  - ON AND OFF PHENOMENON [None]
